FAERS Safety Report 15220017 (Version 2)
Quarter: 2018Q4

REPORT INFORMATION
  Report Type: Spontaneous
  Country: US (occurrence: US)
  Receive Date: 20180731
  Receipt Date: 20181105
  Transmission Date: 20190204
  Serious: No
  Sender: FDA-Public Use
  Company Number: US-PFIZER INC-2018231349

PATIENT
  Age: 50 Year
  Sex: Female
  Weight: 107 kg

DRUGS (12)
  1. LOPERAMIDE [Concomitant]
     Active Substance: LOPERAMIDE
     Indication: GASTROINTESTINAL DISORDER
     Dosage: 2 MG, AS NEEDED
  2. LYRICA [Suspect]
     Active Substance: PREGABALIN
     Indication: COMPLEX REGIONAL PAIN SYNDROME
  3. BACLOFEN. [Concomitant]
     Active Substance: BACLOFEN
     Indication: MUSCLE SPASMS
     Dosage: 10 MG, (2-3 TIMES A DAY)
     Route: 048
  4. CLONAZEPAM. [Concomitant]
     Active Substance: CLONAZEPAM
     Indication: ANXIETY
     Dosage: 2 MG, AS NEEDED
     Route: 048
  5. DICLOFENAC SODIUM. [Concomitant]
     Active Substance: DICLOFENAC SODIUM
     Indication: PAIN
     Dosage: APPLY TO LOWER BACK, 4X/DAY
     Route: 061
  6. TOPIRAMATE. [Concomitant]
     Active Substance: TOPIRAMATE
     Indication: MIGRAINE
     Dosage: UNK
  7. DICYCLOMINE [Concomitant]
     Active Substance: DICYCLOMINE HYDROCHLORIDE
     Indication: GASTROINTESTINAL DISORDER
     Dosage: 20 MG, 3-4 TIMES A DAY, AS NEEDED
  8. LYRICA [Suspect]
     Active Substance: PREGABALIN
     Indication: NEURALGIA
     Dosage: 225 MG, 3X/DAY
     Route: 048
  9. CLARINEX-D [Concomitant]
     Active Substance: DESLORATADINE\PSEUDOEPHEDRINE SULFATE
     Indication: HYPERSENSITIVITY
     Dosage: 1 DF, 2X/DAY
     Route: 048
  10. ALBUTEROL. [Concomitant]
     Active Substance: ALBUTEROL
     Indication: ASTHMA
     Dosage: 2 PUFFS EVERY 4 HOURS, AS NEEDED
     Dates: start: 1992
  11. CLINDAMYCIN. [Concomitant]
     Active Substance: CLINDAMYCIN
     Indication: ROSACEA
     Dosage: APPLY TO AFFECTED AREAS ONCE A DAY, AS NEEDED
     Route: 061
  12. BACLOFEN. [Concomitant]
     Active Substance: BACLOFEN
     Dosage: 4 TIMES A DAY, AS NEEDED

REACTIONS (8)
  - Prescribed overdose [Unknown]
  - Weight increased [Unknown]
  - Feeling abnormal [Unknown]
  - Vision blurred [Not Recovered/Not Resolved]
  - Sinusitis [Unknown]
  - Fatigue [Unknown]
  - Cough [Unknown]
  - Otitis media [Unknown]
